FAERS Safety Report 6389429-2 (Version None)
Quarter: 2009Q4

REPORT INFORMATION
  Report Type: 
  Country: None (occurrence: None)
  Receive Date: 20091006
  Receipt Date: 20090924
  Transmission Date: 20100525
  Serious: No
  Sender: FDA-Public Use
  Company Number: US-B.I. PHARMACEUTICALS,INC./RIDGEFIELD-2009-BP-11260BP

PATIENT
  Sex: Female

DRUGS (13)
  1. SPIRIVA [Suspect]
     Indication: CHRONIC OBSTRUCTIVE PULMONARY DISEASE
     Dosage: 18 MCG
     Route: 055
     Dates: start: 20090401
  2. SPIRIVA [Suspect]
     Indication: MULTIPLE ALLERGIES
  3. SPIRIVA [Suspect]
     Indication: ASTHMA
  4. SINGULAIR [Concomitant]
     Indication: MULTIPLE ALLERGIES
     Dates: start: 20080901
  5. QVAR 40 [Concomitant]
     Indication: CHRONIC OBSTRUCTIVE PULMONARY DISEASE
     Dates: start: 20090401
  6. QVAR 40 [Concomitant]
     Indication: MULTIPLE ALLERGIES
  7. COMBIVENT [Concomitant]
     Indication: CHRONIC OBSTRUCTIVE PULMONARY DISEASE
  8. COMBIVENT [Concomitant]
     Indication: MULTIPLE ALLERGIES
  9. PROAIR HFA [Concomitant]
     Indication: CHRONIC OBSTRUCTIVE PULMONARY DISEASE
  10. PROAIR HFA [Concomitant]
     Indication: MULTIPLE ALLERGIES
  11. MULTI-VITAMIN [Concomitant]
     Indication: ROUTINE HEALTH MAINTENANCE
  12. NAPROXEN [Concomitant]
     Indication: MUSCULOSKELETAL PAIN
     Dates: start: 20090301
  13. HYDROCHLOROTHIAZIDE [Concomitant]
     Indication: HYPERTENSION

REACTIONS (1)
  - WHEEZING [None]
